FAERS Safety Report 8563155-3 (Version None)
Quarter: 2012Q3

REPORT INFORMATION
  Report Type: 
  Country: None (occurrence: None)
  Receive Date: 20120802
  Receipt Date: 20120723
  Transmission Date: 20120928
  Serious: No
  Sender: FDA-Public Use
  Company Number: US-AMGEN-USASP2012032794

PATIENT
  Age: 30 Year
  Sex: Female
  Weight: 81.179 kg

DRUGS (2)
  1. ENBREL [Suspect]
     Indication: PSORIASIS
     Dosage: 50 MG/0.98ML, QWK
     Route: 058
     Dates: start: 20120321
  2. NORTRIPTYLINE HCL [Concomitant]
     Indication: FIBROMYALGIA
     Dosage: 10 MG, QD
     Route: 048

REACTIONS (4)
  - INJECTION SITE PAIN [None]
  - INJECTION SITE REACTION [None]
  - INJECTION SITE ERYTHEMA [None]
  - INJECTION SITE SWELLING [None]
